FAERS Safety Report 9675400 (Version 1)
Quarter: 2013Q4

REPORT INFORMATION
  Report Type: Spontaneous
  Country: FR (occurrence: FR)
  Receive Date: 20131107
  Receipt Date: 20131107
  Transmission Date: 20140711
  Serious: Yes (Hospitalization)
  Sender: FDA-Public Use
  Company Number: FR-SA-2013SA112864

PATIENT
  Age: 64 Year
  Sex: Male

DRUGS (8)
  1. COAPROVEL [Suspect]
     Indication: PRODUCT USED FOR UNKNOWN INDICATION
     Dosage: STRENGTH :300 MG/25 MG
     Route: 048
  2. LANSOPRAZOLE [Suspect]
     Indication: PRODUCT USED FOR UNKNOWN INDICATION
     Route: 065
  3. INSULIN [Suspect]
     Indication: PRODUCT USED FOR UNKNOWN INDICATION
     Route: 065
  4. EPITOMAX [Suspect]
     Indication: EPILEPSY
     Route: 048
  5. SILODYX [Suspect]
     Indication: PRODUCT USED FOR UNKNOWN INDICATION
     Dosage: STRENGTH : 8 MG
     Route: 048
  6. BRICANYL TURBUHALER [Suspect]
     Indication: PRODUCT USED FOR UNKNOWN INDICATION
     Dosage: FORM:POWDER FOR INHALATION?ROUTE:RESPIRATORY?STRENGTH : 500 MCG/DOSE
  7. TAHOR [Suspect]
     Indication: PRODUCT USED FOR UNKNOWN INDICATION
     Dosage: STRENGTH : 10 MG
     Route: 048
  8. ZYLORIC [Suspect]
     Indication: PRODUCT USED FOR UNKNOWN INDICATION
     Dosage: STRENGTH :100 MG
     Route: 048

REACTIONS (5)
  - Metabolic acidosis [Not Recovered/Not Resolved]
  - Blood pH decreased [Not Recovered/Not Resolved]
  - PO2 decreased [Not Recovered/Not Resolved]
  - Oxygen saturation decreased [Not Recovered/Not Resolved]
  - Blood bicarbonate decreased [Not Recovered/Not Resolved]
